FAERS Safety Report 9485650 (Version 1)
Quarter: 2013Q3

REPORT INFORMATION
  Report Type: Report from Study
  Country: GB (occurrence: GB)
  Receive Date: 20130829
  Receipt Date: 20130829
  Transmission Date: 20140515
  Serious: Yes (Other)
  Sender: FDA-Public Use
  Company Number: GB-BRISTOL-MYERS SQUIBB COMPANY-19219757

PATIENT
  Age: 66 Year
  Sex: Male

DRUGS (1)
  1. DASATINIB [Suspect]
     Indication: CHRONIC MYELOID LEUKAEMIA

REACTIONS (2)
  - Hepatotoxicity [Unknown]
  - Fluid retention [Unknown]
